FAERS Safety Report 9028695 (Version 1)
Quarter: 2013Q1

REPORT INFORMATION
  Report Type: Report from Study
  Country: IT (occurrence: IT)
  Receive Date: 20130124
  Receipt Date: 20130124
  Transmission Date: 20140127
  Serious: Yes (Other)
  Sender: FDA-Public Use
  Company Number: IT-UCBSA-075678

PATIENT
  Sex: 0

DRUGS (1)
  1. LACOSAMIDE [Suspect]
     Indication: EPILEPSY
     Dosage: INITIALLY 100 MG/DAY, TITRATED TO 50 MG/DAY INCREMENTS/WEEK UNTIL THE TARGET DOSE (100-600 MG/DAY)
     Route: 048

REACTIONS (1)
  - Status epilepticus [Unknown]
